FAERS Safety Report 7500495-0 (Version None)
Quarter: 2011Q2

REPORT INFORMATION
  Report Type: 
  Country: None (occurrence: None)
  Receive Date: 20110524
  Receipt Date: 20110520
  Transmission Date: 20111010
  Serious: No
  Sender: FDA-Public Use
  Company Number: US-PFIZER INC-2011109631

PATIENT
  Sex: Female
  Weight: 68 kg

DRUGS (3)
  1. NORVASC [Suspect]
     Indication: HYPERTENSION
     Dosage: UNK
     Route: 048
     Dates: start: 20110101
  2. SYNTHROID [Concomitant]
     Indication: THYROID DISORDER
     Dosage: 1 MG, UNK
  3. BABYPRIN [Concomitant]
     Dosage: UNK

REACTIONS (5)
  - FATIGUE [None]
  - BLOOD CHOLESTEROL ABNORMAL [None]
  - ANXIETY [None]
  - NIGHTMARE [None]
  - INSOMNIA [None]
